FAERS Safety Report 7411074-8 (Version None)
Quarter: 2011Q2

REPORT INFORMATION
  Report Type: 
  Country: None (occurrence: None)
  Receive Date: 20110413
  Receipt Date: 20110406
  Transmission Date: 20111010
  Serious: Yes (Death, Other)
  Sender: FDA-Public Use
  Company Number: US-SANOFI-AVENTIS-2011SA021862

PATIENT
  Sex: Male

DRUGS (2)
  1. LOVENOX [Suspect]
     Indication: PROPHYLAXIS
     Route: 065
     Dates: start: 20110318, end: 20110323
  2. LOVENOX [Suspect]
     Route: 065
     Dates: start: 20110323

REACTIONS (2)
  - PULMONARY EMBOLISM [None]
  - PSEUDOMONAL SEPSIS [None]
